FAERS Safety Report 19781561 (Version 2)
Quarter: 2021Q3

REPORT INFORMATION
  Report Type: Report from Study
  Country: IT (occurrence: IT)
  Receive Date: 20210902
  Receipt Date: 20210910
  Transmission Date: 20211014
  Serious: Yes (Hospitalization)
  Sender: FDA-Public Use
  Company Number: IT-DSJP-DSU-2021-128218

PATIENT
  Age: 55 Year
  Sex: Male
  Weight: 58.6 kg

DRUGS (8)
  1. KEPPRA [Concomitant]
     Active Substance: LEVETIRACETAM
     Indication: PROPHYLAXIS
     Dosage: 500 MG, BID
     Route: 048
     Dates: start: 20210422
  2. BLINDED DS?8201A [Suspect]
     Active Substance: FAM-TRASTUZUMAB DERUXTECAN-NXKI
     Indication: COLORECTAL CANCER METASTATIC
     Dosage: 316 MG ONCE EVERY 3 WK
     Route: 042
     Dates: start: 20210826, end: 20210826
  3. BISOPROLOL [Concomitant]
     Active Substance: BISOPROLOL
     Indication: TACHYCARDIA
     Dosage: 2.5 MG, BID
     Route: 048
     Dates: start: 20210823
  4. OMEPRAZOLO [Concomitant]
     Active Substance: OMEPRAZOLE
     Indication: GASTRITIS PROPHYLAXIS
     Dosage: 20 MG, QD
     Route: 048
     Dates: start: 202101
  5. RIVOTRIL [Concomitant]
     Active Substance: CLONAZEPAM
     Indication: INSOMNIA
     Dosage: 5 GGT, QD
     Route: 048
     Dates: start: 20210818
  6. MERITENE [Concomitant]
     Indication: NUTRITIONAL SUPPLEMENTATION
     Dosage: 20 ML, TID
     Route: 048
     Dates: start: 20210818
  7. DEPALGOS [Concomitant]
     Active Substance: ACETAMINOPHEN\OXYCODONE HYDROCHLORIDE
     Indication: PAIN
     Dosage: 10 MG, QD
     Route: 048
     Dates: start: 202101
  8. SERACTIL [Concomitant]
     Active Substance: DEXIBUPROFEN
     Indication: PAIN
     Dosage: 400 MG, AS NEEDED
     Route: 048
     Dates: start: 20210810

REACTIONS (1)
  - Hypoxia [Not Recovered/Not Resolved]

NARRATIVE: CASE EVENT DATE: 20210826
